FAERS Safety Report 19825855 (Version 1)
Quarter: 2021Q3

REPORT INFORMATION
  Report Type: Spontaneous
  Country: US (occurrence: US)
  Receive Date: 20210914
  Receipt Date: 20210914
  Transmission Date: 20211014
  Serious: Yes (Other)
  Sender: FDA-Public Use
  Company Number: US-AUROBINDO-AUR-APL-2021-038739

PATIENT
  Age: 2 Year
  Sex: Male

DRUGS (8)
  1. DOXORUBICIN [Suspect]
     Active Substance: DOXORUBICIN
     Indication: PLEUROPULMONARY BLASTOMA
     Dosage: UNK UNK,12 CYCLICAL
     Route: 065
  2. IFOSFAMIDE. [Suspect]
     Active Substance: IFOSFAMIDE
     Indication: OVARIAN SERTOLI-LEYDIG CELL TUMOUR
     Dosage: UNK
     Route: 065
  3. DACTINOMYCIN [Suspect]
     Active Substance: DACTINOMYCIN
     Indication: OVARIAN SERTOLI-LEYDIG CELL TUMOUR
     Dosage: UNK UNK, 12CYCLICAL
     Route: 065
  4. DOXORUBICIN [Suspect]
     Active Substance: DOXORUBICIN
     Indication: OVARIAN SERTOLI-LEYDIG CELL TUMOUR
  5. VINCRISTINE SULFATE. [Suspect]
     Active Substance: VINCRISTINE SULFATE
     Indication: OVARIAN SERTOLI-LEYDIG CELL TUMOUR
     Dosage: UNK UNK,12 CYCLICAL
     Route: 065
  6. DACTINOMYCIN [Suspect]
     Active Substance: DACTINOMYCIN
     Indication: PLEUROPULMONARY BLASTOMA
  7. VINCRISTINE SULFATE. [Suspect]
     Active Substance: VINCRISTINE SULFATE
     Indication: PLEUROPULMONARY BLASTOMA
  8. IFOSFAMIDE. [Suspect]
     Active Substance: IFOSFAMIDE
     Indication: PLEUROPULMONARY BLASTOMA

REACTIONS (1)
  - Selective mutism [Unknown]
